FAERS Safety Report 16184335 (Version 1)
Quarter: 2019Q2

REPORT INFORMATION
  Report Type: Spontaneous
  Country: US (occurrence: US)
  Receive Date: 20190410
  Receipt Date: 20190410
  Transmission Date: 20190711
  Serious: Yes (Hospitalization)
  Sender: FDA-Public Use
  Company Number: None

PATIENT
  Age: 60 Year
  Sex: Female
  Weight: 68.68 kg

DRUGS (11)
  1. METFORMIN [Suspect]
     Active Substance: METFORMIN HYDROCHLORIDE
     Indication: DIABETES MELLITUS
     Route: 048
     Dates: start: 20150101, end: 20190220
  2. ROSUVASTATIN 10 MG QD [Concomitant]
  3. ABEMACICLIB [Suspect]
     Active Substance: ABEMACICLIB
     Indication: BREAST CANCER METASTATIC
     Route: 048
     Dates: start: 20190118, end: 20190220
  4. ACETAMINOPHEN 1000 MG TID PRN [Concomitant]
  5. LORATADINE 10 MG QD [Concomitant]
  6. DEXAMETHASONE 1 MG QD [Concomitant]
  7. MORPHINE SR 100MG Q12H [Concomitant]
  8. PREGABALIN 75 MG BID [Concomitant]
  9. DULOXETINE 60 MG QD [Concomitant]
  10. GLIPIZIDE XL 2.5 MG QD [Concomitant]
  11. HYDROMORPHONE 4 MG Q3H PRN [Concomitant]

REACTIONS (4)
  - Acute kidney injury [None]
  - Dialysis [None]
  - Mental status changes [None]
  - Metabolic acidosis [None]

NARRATIVE: CASE EVENT DATE: 20190220
